FAERS Safety Report 4536907-4 (Version None)
Quarter: 2004Q4

REPORT INFORMATION
  Report Type: 
  Country: None (occurrence: None)
  Receive Date: 20041223
  Receipt Date: 20041214
  Transmission Date: 20050328
  Serious: Yes (Other)
  Sender: FDA-Public Use
  Company Number: CH-GLAXOSMITHKLINE-B0362601A

PATIENT
  Age: 61 Year
  Sex: Female

DRUGS (1)
  1. ZYBAN [Suspect]
     Indication: TOBACCO ABUSE
     Route: 048
     Dates: start: 20040830, end: 20041025

REACTIONS (4)
  - AGGRESSION [None]
  - EXCITABILITY [None]
  - NEGATIVE THOUGHTS [None]
  - SUICIDAL IDEATION [None]
